FAERS Safety Report 23946968 (Version 1)
Quarter: 2024Q2

REPORT INFORMATION
  Report Type: Spontaneous
  Country: US (occurrence: US)
  Receive Date: 20240606
  Receipt Date: 20240606
  Transmission Date: 20240716
  Serious: Yes (Death, Hospitalization, Other)
  Sender: FDA-Public Use
  Company Number: US-AMGEN-HZN-2024-005318

PATIENT
  Age: 50 Year
  Sex: Male

DRUGS (1)
  1. KRYSTEXXA [Suspect]
     Active Substance: PEGLOTICASE
     Indication: Gout
     Dosage: 8 MILLIGRAM, Q2WK, FIRST INFUSION 8 MG, EVERY 2 WEEKS
     Route: 042
     Dates: start: 20240423

REACTIONS (5)
  - Death [Fatal]
  - Gastrointestinal haemorrhage [Unknown]
  - Staphylococcal infection [Unknown]
  - Arthritis bacterial [Unknown]
  - Gout [Unknown]

NARRATIVE: CASE EVENT DATE: 20240501
